FAERS Safety Report 22172226 (Version 1)
Quarter: 2023Q2

REPORT INFORMATION
  Report Type: Spontaneous
  Country: US (occurrence: None)
  Receive Date: 20230403
  Receipt Date: 20230403
  Transmission Date: 20230722
  Serious: Yes (Hospitalization)
  Sender: FDA-Public Use
  Company Number: None

PATIENT
  Age: 9 Year
  Sex: Female

DRUGS (1)
  1. LUPRON DEPOT-PED [Suspect]
     Active Substance: LEUPROLIDE ACETATE
     Route: 030
     Dates: start: 202207, end: 202301

REACTIONS (9)
  - Injection site abscess [None]
  - Hypersensitivity [None]
  - Headache [None]
  - Night sweats [None]
  - Dizziness [None]
  - Nausea [None]
  - Erythema [None]
  - Tenderness [None]
  - Gait disturbance [None]

NARRATIVE: CASE EVENT DATE: 20221028
